FAERS Safety Report 6136838-2 (Version None)
Quarter: 2009Q1

REPORT INFORMATION
  Report Type: 
  Country: None (occurrence: None)
  Receive Date: 20090325
  Receipt Date: 20090216
  Transmission Date: 20090719
  Serious: Yes (Hospitalization)
  Sender: FDA-Public Use
  Company Number: 2009AP000606

PATIENT
  Age: 47 Year
  Sex: Male

DRUGS (6)
  1. FAMOTIDINE [Suspect]
     Indication: CHOLECYSTITIS ACUTE
  2. MORPHINE [Concomitant]
  3. CEFOXITIN [Concomitant]
  4. FENTANYL-25 [Concomitant]
  5. PROPOFOL [Concomitant]
  6. VECURONIUM BROMIDE [Concomitant]

REACTIONS (2)
  - HEPATITIS [None]
  - INTERNATIONAL NORMALISED RATIO INCREASED [None]
